FAERS Safety Report 8364152-3 (Version None)
Quarter: 2012Q2

REPORT INFORMATION
  Report Type: 
  Country: None (occurrence: None)
  Receive Date: 20120516
  Receipt Date: 20120507
  Transmission Date: 20120825
  Serious: Yes (Other)
  Sender: FDA-Public Use
  Company Number: US-ASTRAZENECA-2012SE29536

PATIENT
  Age: 43 Year
  Sex: Male
  Weight: 111.1 kg

DRUGS (9)
  1. SEROQUEL [Suspect]
     Route: 048
     Dates: start: 20120501
  2. LAMICTAL [Concomitant]
  3. AMBIEN [Concomitant]
  4. SEROQUEL [Suspect]
     Route: 048
     Dates: start: 20120501
  5. SEROQUEL [Suspect]
     Indication: NERVOUS SYSTEM DISORDER
     Route: 048
     Dates: start: 20110201
  6. SEROQUEL [Suspect]
     Route: 048
     Dates: start: 20120501
  7. TIZANIDINE [Concomitant]
  8. SEROQUEL [Suspect]
     Route: 048
     Dates: start: 20120501
  9. SEROQUEL [Suspect]
     Indication: DEPRESSION
     Route: 048
     Dates: start: 20110201

REACTIONS (6)
  - COGNITIVE DISORDER [None]
  - INTENTIONAL DRUG MISUSE [None]
  - BRAIN INJURY [None]
  - INSOMNIA [None]
  - OFF LABEL USE [None]
  - FALL [None]
